FAERS Safety Report 16829806 (Version 1)
Quarter: 2019Q3

REPORT INFORMATION
  Report Type: Spontaneous
  Country: BR (occurrence: BR)
  Receive Date: 20190919
  Receipt Date: 20190919
  Transmission Date: 20191005
  Serious: Yes (Other)
  Sender: FDA-Public Use
  Company Number: PHHY2019BR216800

PATIENT
  Age: 42 Year
  Sex: Female

DRUGS (4)
  1. IMATINIB. [Suspect]
     Active Substance: IMATINIB MESYLATE
     Dosage: 300 MG, UNK
     Route: 065
  2. DASATINIB. [Suspect]
     Active Substance: DASATINIB
     Indication: PRODUCT USED FOR UNKNOWN INDICATION
     Dosage: 100 MG, QD
     Route: 065
  3. IMATINIB. [Suspect]
     Active Substance: IMATINIB MESYLATE
     Indication: PRODUCT USED FOR UNKNOWN INDICATION
     Dosage: 400 MG, UNK
     Route: 065
     Dates: start: 200801
  4. NILOTINIB [Suspect]
     Active Substance: NILOTINIB
     Indication: PRODUCT USED FOR UNKNOWN INDICATION
     Dosage: 800 MG, QD
     Route: 065
     Dates: start: 201009

REACTIONS (20)
  - Anaemia [Unknown]
  - Periorbital oedema [Unknown]
  - Neutrophil count [Unknown]
  - Bone marrow failure [Unknown]
  - Cytogenetic analysis abnormal [Unknown]
  - Nausea [Unknown]
  - Diarrhoea [Unknown]
  - Growth retardation [Unknown]
  - Fatigue [Unknown]
  - Arthralgia [Unknown]
  - Platelet count decreased [Unknown]
  - Headache [Unknown]
  - Oedema peripheral [Unknown]
  - Transient global amnesia [Not Recovered/Not Resolved]
  - White blood cell count decreased [Unknown]
  - Dermatitis allergic [Unknown]
  - Thrombocytopenia [Unknown]
  - Rash [Unknown]
  - Muscle spasms [Unknown]
  - Fluid retention [Unknown]

NARRATIVE: CASE EVENT DATE: 201104
